FAERS Safety Report 8837438 (Version 1)
Quarter: 2012Q4

REPORT INFORMATION
  Report Type: 
  Country: US (occurrence: US)
  Receive Date: 20121012
  Receipt Date: 20121012
  Transmission Date: 20130627
  Serious: Yes (Other)
  Sender: FDA-Public Use
  Company Number: US-FRI-1000039169

PATIENT
  Age: 95 Year
  Sex: Male

DRUGS (3)
  1. BYSTOLIC [Suspect]
     Dates: start: 2012
  2. ALLEGRA [Suspect]
     Route: 048
     Dates: start: 20120920
  3. COUMADIN [Suspect]

REACTIONS (1)
  - Coagulopathy [Recovered/Resolved]
